FAERS Safety Report 7512780-7 (Version None)
Quarter: 2011Q2

REPORT INFORMATION
  Report Type: 
  Country: None (occurrence: None)
  Receive Date: 20110531
  Receipt Date: 20110519
  Transmission Date: 20111010
  Serious: Yes (Hospitalization, Other)
  Sender: FDA-Public Use
  Company Number: B0709454A

PATIENT
  Sex: Male
  Weight: 105 kg

DRUGS (1)
  1. MALARONE [Suspect]
     Indication: PROPHYLAXIS
     Dosage: 1TAB PER DAY
     Route: 065
     Dates: start: 20110304, end: 20110319

REACTIONS (22)
  - FEELING HOT [None]
  - CRYING [None]
  - APATHY [None]
  - MALAISE [None]
  - DEPRESSED MOOD [None]
  - DISSOCIATION [None]
  - VOMITING [None]
  - PALLOR [None]
  - EYE MOVEMENT DISORDER [None]
  - HALLUCINATION [None]
  - ABNORMAL BEHAVIOUR [None]
  - CONFUSIONAL STATE [None]
  - DELUSION [None]
  - PYREXIA [None]
  - NAUSEA [None]
  - SOMNOLENCE [None]
  - ANXIETY [None]
  - FATIGUE [None]
  - FEAR [None]
  - PANIC ATTACK [None]
  - NIGHTMARE [None]
  - OROPHARYNGEAL PAIN [None]
